FAERS Safety Report 21931502 (Version 1)
Quarter: 2023Q1

REPORT INFORMATION
  Report Type: Spontaneous
  Country: US (occurrence: None)
  Receive Date: 20230130
  Receipt Date: 20230130
  Transmission Date: 20230418
  Serious: Yes (Hospitalization)
  Sender: FDA-Public Use
  Company Number: None

PATIENT
  Age: 78 Year
  Sex: Female

DRUGS (18)
  1. LENALIDOMIDE [Suspect]
     Active Substance: LENALIDOMIDE
     Indication: Plasma cell myeloma
     Dosage: OTHER FREQUENCY : 21DON7DOFF;?
     Route: 048
  2. ALENDRONATE [Concomitant]
  3. ANASTROZOLE [Concomitant]
  4. ASPIRIN LOW [Concomitant]
  5. CARVEDILOL [Concomitant]
  6. CHOLESTYRAMINE [Concomitant]
  7. DOXYCYCLINE [Concomitant]
     Active Substance: DOXYCYCLINE
  8. ELIQUIS [Concomitant]
  9. FUROSEMIDE [Concomitant]
  10. GABAPENTIN [Concomitant]
  11. LATANOPROST [Concomitant]
  12. LEVOFLOXACIN [Concomitant]
  13. LEVOTHYROXINE [Concomitant]
  14. MAGOX [Concomitant]
  15. NEXIUM [Concomitant]
  16. SERTRALINE [Concomitant]
  17. VALACYCLOVIR [Concomitant]
  18. VITAMIN B2 [Concomitant]
     Active Substance: RIBOFLAVIN

REACTIONS (2)
  - Heart rate decreased [None]
  - Atrial fibrillation [None]
